FAERS Safety Report 8214705-8 (Version None)
Quarter: 2012Q1

REPORT INFORMATION
  Report Type: 
  Country: None (occurrence: None)
  Receive Date: 20120313
  Receipt Date: 20120302
  Transmission Date: 20120608
  Serious: Yes (Hospitalization)
  Sender: FDA-Public Use
  Company Number: 2012-000899

PATIENT
  Sex: Female

DRUGS (1)
  1. ATELVIA [Suspect]
     Dosage: 35 MG ONCE WEEKLY, ORAL
     Route: 048
     Dates: start: 20111218, end: 20120201

REACTIONS (19)
  - ABDOMINAL PAIN UPPER [None]
  - PRURITUS [None]
  - VOMITING [None]
  - SWELLING FACE [None]
  - PHARYNGEAL OEDEMA [None]
  - PARAESTHESIA [None]
  - TOOTHACHE [None]
  - HYPOAESTHESIA [None]
  - ABDOMINAL DISTENSION [None]
  - RASH [None]
  - SWOLLEN TONGUE [None]
  - URTICARIA [None]
  - FLATULENCE [None]
  - FEELING OF BODY TEMPERATURE CHANGE [None]
  - LIP SWELLING [None]
  - ABDOMINAL PAIN [None]
  - ERUCTATION [None]
  - ABDOMINAL DISCOMFORT [None]
  - DIARRHOEA [None]
